FAERS Safety Report 13818952 (Version 1)
Quarter: 2017Q3

REPORT INFORMATION
  Report Type: Report from Study
  Country: US (occurrence: US)
  Receive Date: 20170801
  Receipt Date: 20170801
  Transmission Date: 20171127
  Serious: Yes (Hospitalization)
  Sender: FDA-Public Use
  Company Number: US-PHARMING GROUP N.V.-PHAUS2017000016

PATIENT

DRUGS (7)
  1. ALBUTEROL. [Concomitant]
     Active Substance: ALBUTEROL
     Indication: ASTHMA
     Dosage: 90 ?G, PRN
     Route: 055
     Dates: start: 2013
  2. XYLOCAINE #1 [Concomitant]
     Dosage: UNK, PRN
     Route: 061
  3. RUCONEST [Suspect]
     Active Substance: HUMAN C1-ESTERASE INHIBITOR
     Indication: HEREDITARY ANGIOEDEMA
     Dosage: 3525 IU, PRN
     Route: 042
     Dates: start: 20170201, end: 20170212
  4. LMX 4 [Concomitant]
     Dosage: UNK UNK, PRN
     Route: 061
  5. XYLOCAINE #1 [Concomitant]
     Dosage: UNK, PRN
     Route: 066
  6. ZYRTEC [Concomitant]
     Active Substance: CETIRIZINE HYDROCHLORIDE
     Indication: HYPERSENSITIVITY
     Dosage: 5 MG, PRN
     Route: 048
     Dates: start: 2015
  7. TYLENOL [Concomitant]
     Active Substance: ACETAMINOPHEN
     Dosage: 650 MG, PRN
     Route: 048
     Dates: end: 20170226

REACTIONS (4)
  - Eye swelling [Recovered/Resolved]
  - Erysipelas [Recovered/Resolved]
  - Pharyngeal oedema [Recovered/Resolved]
  - Dyspnoea [Recovering/Resolving]

NARRATIVE: CASE EVENT DATE: 20170224
